FAERS Safety Report 16258149 (Version 1)
Quarter: 2019Q2

REPORT INFORMATION
  Report Type: Spontaneous
  Country: IT (occurrence: IT)
  Receive Date: 20190430
  Receipt Date: 20190430
  Transmission Date: 20190711
  Serious: Yes (Other)
  Sender: FDA-Public Use
  Company Number: IT-009507513-1904ITA012125

PATIENT
  Age: 59 Year
  Sex: Female

DRUGS (1)
  1. KEYTRUDA [Suspect]
     Active Substance: PEMBROLIZUMAB
     Indication: LUNG ADENOCARCINOMA
     Dosage: 130 MILLIGRAM, CYCLICAL
     Route: 042
     Dates: start: 20181015, end: 20190226

REACTIONS (1)
  - Secondary hypothyroidism [Recovering/Resolving]

NARRATIVE: CASE EVENT DATE: 20190319
